FAERS Safety Report 4873581-1 (Version None)
Quarter: 2006Q1

REPORT INFORMATION
  Report Type: 
  Country: None (occurrence: None)
  Receive Date: 20060105
  Receipt Date: 20051005
  Transmission Date: 20060701
  Serious: Yes (Death, Hospitalization)
  Sender: FDA-Public Use
  Company Number: US-MERCK-0510USA04426

PATIENT
  Age: 50 Year
  Sex: Male
  Weight: 88 kg

DRUGS (3)
  1. VIOXX [Suspect]
     Indication: GOUT
     Route: 048
     Dates: start: 19990823, end: 20020208
  2. DARVOCET-N 100 [Suspect]
     Route: 065
  3. COUMADIN [Suspect]
     Route: 065

REACTIONS (15)
  - BACTERIAL INFECTION [None]
  - CARDIAC FAILURE CONGESTIVE [None]
  - CELLULITIS [None]
  - CEREBRAL HAEMORRHAGE [None]
  - DIZZINESS [None]
  - GOUT [None]
  - HYPERTENSION [None]
  - HYPOCOAGULABLE STATE [None]
  - HYPOKALAEMIA [None]
  - HYPONATRAEMIA [None]
  - LEUKOCYTOSIS [None]
  - RESPIRATORY TRACT INFECTION [None]
  - SOMNOLENCE [None]
  - SYNCOPE [None]
  - TOE AMPUTATION [None]
